FAERS Safety Report 5720123-4 (Version None)
Quarter: 2008Q2

REPORT INFORMATION
  Report Type: 
  Country: None (occurrence: None)
  Receive Date: 20080428
  Receipt Date: 20071202
  Transmission Date: 20081010
  Serious: No
  Sender: FDA-Public Use
  Company Number: US-AMGEN-US254903

PATIENT
  Sex: Female

DRUGS (5)
  1. SENSIPAR [Suspect]
     Indication: HYPERPARATHYROIDISM SECONDARY
     Route: 065
  2. TEGRETOL [Concomitant]
     Route: 065
  3. RENAGEL [Concomitant]
     Route: 065
  4. CLONAZEPAM [Concomitant]
     Route: 065
  5. CLARITIN [Concomitant]
     Route: 065

REACTIONS (2)
  - PARAESTHESIA [None]
  - PRURITUS [None]
